FAERS Safety Report 9996454 (Version 2)
Quarter: 2014Q1

REPORT INFORMATION
  Report Type: Spontaneous
  Country: BE (occurrence: BE)
  Receive Date: 20140311
  Receipt Date: 20140311
  Transmission Date: 20141002
  Serious: Yes (Death, Hospitalization)
  Sender: FDA-Public Use
  Company Number: BE-ELI_LILLY_AND_COMPANY-BE201311009651

PATIENT
  Sex: Male
  Weight: 58.6 kg

DRUGS (13)
  1. ALIMTA [Suspect]
     Indication: NON-SMALL CELL LUNG CANCER
     Dosage: 824 MG, EVERY 3 WEEKS
     Route: 042
     Dates: start: 20131008
  2. CISPLATIN [Concomitant]
     Indication: NON-SMALL CELL LUNG CANCER
     Dosage: 124 MG, EVERY 3 WEEKS
     Dates: start: 20131008
  3. FOLAVIT [Concomitant]
     Dosage: 0.4 MG, UNK
     Route: 048
     Dates: start: 20130913
  4. VITAMIN B12                        /00056201/ [Concomitant]
     Dosage: 1 MG, UNK
     Route: 030
     Dates: start: 20130913
  5. MEDROL                             /00049601/ [Concomitant]
     Dosage: 8 MG, UNK
  6. PANTOMED                           /01263204/ [Concomitant]
     Dosage: 40 MG, UNK
  7. DAFALGAN [Concomitant]
     Dosage: 1 G, UNK
  8. CONTRAMAL [Concomitant]
  9. ASAFLOW [Concomitant]
     Dosage: 80 MG, UNK
  10. CRESTOR [Concomitant]
     Dosage: 10 MG, UNK
  11. IMOVANE [Concomitant]
     Dosage: 7.5 MG, UNK
  12. PROSTA URGENIN [Concomitant]
  13. VITAMIN C                          /00008001/ [Concomitant]
     Dosage: 300 G, UNK

REACTIONS (10)
  - Hepatic failure [Fatal]
  - Renal failure [Fatal]
  - Bone marrow failure [Fatal]
  - Respiratory failure [Fatal]
  - Cardiac failure [Fatal]
  - Neutropenic sepsis [Fatal]
  - Pneumonia [Unknown]
  - Dehydration [Unknown]
  - Hypotension [Unknown]
  - Pyrexia [Unknown]
